FAERS Safety Report 5602855-1 (Version None)
Quarter: 2008Q1

REPORT INFORMATION
  Report Type: 
  Country: None (occurrence: None)
  Receive Date: 20080125
  Receipt Date: 20080117
  Transmission Date: 20080703
  Serious: Yes (Other)
  Sender: FDA-Public Use
  Company Number: US-GENENTECH-254696

PATIENT
  Sex: Female
  Weight: 61.678 kg

DRUGS (4)
  1. HERCEPTIN [Suspect]
     Indication: BREAST CANCER
     Dosage: UNK, UNK
     Dates: start: 20071004, end: 20071226
  2. HERCEPTIN [Suspect]
     Dosage: 13 UNIT, UNK
     Dates: start: 20080102
  3. HERCEPTIN [Suspect]
     Dosage: 40 UNIT, UNK
     Dates: start: 20080109
  4. TAXOL [Concomitant]
     Indication: DRUG USE FOR UNKNOWN INDICATION
     Dosage: UNK, UNK
     Dates: start: 20071004, end: 20071226

REACTIONS (2)
  - CHEST PAIN [None]
  - DYSPNOEA [None]
